FAERS Safety Report 7701482-X (Version None)
Quarter: 2011Q3

REPORT INFORMATION
  Report Type: 
  Country: None (occurrence: None)
  Receive Date: 20110819
  Receipt Date: 20110819
  Transmission Date: 20111222
  Serious: Yes (Hospitalization)
  Sender: FDA-Public Use
  Company Number: None

PATIENT
  Sex: Female
  Weight: 119 kg

DRUGS (4)
  1. NEULASTA [Suspect]
     Dosage: 6 MG
  2. CARBOPLATIN [Suspect]
     Dosage: 567 MG
  3. PACLITAXEL [Suspect]
     Dosage: 350 MG
  4. CISPLATIN [Suspect]
     Dosage: 200 MG

REACTIONS (9)
  - LEFT VENTRICULAR HYPERTROPHY [None]
  - UNRESPONSIVE TO STIMULI [None]
  - ELECTROCARDIOGRAM ST-T CHANGE [None]
  - DIARRHOEA [None]
  - NUCLEAR MAGNETIC RESONANCE IMAGING BRAIN ABNORMAL [None]
  - BRAIN SCAN ABNORMAL [None]
  - FATIGUE [None]
  - GRAND MAL CONVULSION [None]
  - DISORIENTATION [None]
